FAERS Safety Report 17480758 (Version 1)
Quarter: 2020Q1

REPORT INFORMATION
  Report Type: Spontaneous
  Country: US (occurrence: US)
  Receive Date: 20200301
  Receipt Date: 20200301
  Transmission Date: 20200409
  Serious: Yes (Death, Other)
  Sender: FDA-Public Use
  Company Number: US-BRISTOL-MYERS SQUIBB COMPANY-BMS-2020-017574

PATIENT
  Age: 46 Year
  Sex: Male

DRUGS (2)
  1. OPDIVO [Suspect]
     Active Substance: NIVOLUMAB
     Indication: PANCREATIC NEUROENDOCRINE TUMOUR
     Dosage: 200 MILLIGRAM, Q3WK
     Route: 042
     Dates: start: 20191227
  2. YERVOY [Suspect]
     Active Substance: IPILIMUMAB
     Indication: PANCREATIC NEUROENDOCRINE TUMOUR
     Dosage: 70 MILLIGRAM, Q3WK
     Route: 042
     Dates: start: 20191227

REACTIONS (1)
  - Death [Fatal]

NARRATIVE: CASE EVENT DATE: 20200116
